FAERS Safety Report 7904461-2 (Version None)
Quarter: 2011Q4

REPORT INFORMATION
  Report Type: 
  Country: None (occurrence: None)
  Receive Date: 20111109
  Receipt Date: 20111107
  Transmission Date: 20120403
  Serious: Yes (Hospitalization)
  Sender: FDA-Public Use
  Company Number: BE-BAYER-2011-085408

PATIENT
  Sex: Female

DRUGS (2)
  1. NEXAVAR [Suspect]
     Dosage: 400 MG
     Dates: start: 20111001
  2. NEXAVAR [Suspect]
     Indication: RENAL CELL CARCINOMA
     Dosage: DAILY DOSE 800 MG
     Dates: start: 20110912, end: 20110919

REACTIONS (7)
  - NAUSEA [None]
  - STOMATITIS [None]
  - VOMITING [None]
  - APHAGIA [None]
  - ALOPECIA [None]
  - ORAL INFECTION [None]
  - DIARRHOEA [None]
